FAERS Safety Report 9860679 (Version 1)
Quarter: 2014Q1

REPORT INFORMATION
  Report Type: Spontaneous
  Country: US (occurrence: US)
  Receive Date: 20140202
  Receipt Date: 20140202
  Transmission Date: 20141002
  Serious: Yes (Hospitalization)
  Sender: FDA-Public Use
  Company Number: US-ALLERGAN-1300648US

PATIENT
  Age: 30 Year
  Sex: Male

DRUGS (1)
  1. BOTOX [Suspect]
     Indication: CEREBRAL PALSY
     Dosage: UNK UNK, SINGLE

REACTIONS (2)
  - Asthenia [Unknown]
  - Eyelid ptosis [Unknown]
